FAERS Safety Report 15830350 (Version 1)
Quarter: 2019Q1

REPORT INFORMATION
  Report Type: Spontaneous
  Country: US (occurrence: US)
  Receive Date: 20190115
  Receipt Date: 20190115
  Transmission Date: 20190417
  Serious: No
  Sender: FDA-Public Use
  Company Number: US-REGENERON PHARMACEUTICALS, INC.-2018-41917

PATIENT

DRUGS (2)
  1. EYLEA [Suspect]
     Active Substance: AFLIBERCEPT
     Dosage: LAST DOSE PRIOR TO REPORTING
     Route: 031
     Dates: start: 201808, end: 201808
  2. EYLEA [Suspect]
     Active Substance: AFLIBERCEPT
     Indication: DRY EYE
     Dosage: EVERY OTHER MONTH
     Route: 031

REACTIONS (2)
  - Radiation injury [Unknown]
  - Off label use [Not Recovered/Not Resolved]
